APPROVED DRUG PRODUCT: INTRALIPID 30%
Active Ingredient: SOYBEAN OIL
Strength: 30%
Dosage Form/Route: INJECTABLE;INJECTION
Application: N019942 | Product #001
Applicant: FRESENIUS KABI DEUTSCHLAND GMBH
Approved: Dec 30, 1993 | RLD: Yes | RS: Yes | Type: RX